FAERS Safety Report 9803057 (Version 1)
Quarter: 2014Q1

REPORT INFORMATION
  Report Type: Spontaneous
  Country: US (occurrence: None)
  Receive Date: 20140102
  Receipt Date: 20140102
  Transmission Date: 20141002
  Serious: Yes (Death)
  Sender: FDA-Public Use
  Company Number: UTC-042338

PATIENT
  Age: 79 Year
  Sex: Female
  Weight: 72.72 kg

DRUGS (2)
  1. TYVASO (6 MICROGRAM, AEROSOL FOR INHALATION) (TREPROSTINIL SODIUM) [Suspect]
     Indication: COR PULMONALE CHRONIC
     Dosage: 3 IN 1 D
     Route: 055
     Dates: start: 20110308
  2. COUMADIN [Concomitant]

REACTIONS (1)
  - Death [None]
